FAERS Safety Report 9992444 (Version 1)
Quarter: 2014Q1

REPORT INFORMATION
  Report Type: Spontaneous
  Country: NO (occurrence: NO)
  Receive Date: 20140310
  Receipt Date: 20140310
  Transmission Date: 20141002
  Serious: Yes (Other)
  Sender: FDA-Public Use
  Company Number: NO-GLAXOSMITHKLINE-B0974728A

PATIENT
  Sex: Female

DRUGS (3)
  1. REQUIP DEPOT [Suspect]
     Indication: PARKINSON^S DISEASE
     Dosage: 16MG PER DAY
     Route: 048
     Dates: start: 2011, end: 2014
  2. AZILECT [Suspect]
     Indication: PRODUCT USED FOR UNKNOWN INDICATION
     Route: 048
     Dates: start: 2010
  3. SIFROL [Concomitant]
     Indication: PARKINSON^S DISEASE

REACTIONS (2)
  - Economic problem [Not Recovered/Not Resolved]
  - Pathological gambling [Not Recovered/Not Resolved]
